FAERS Safety Report 5829832-X (Version None)
Quarter: 2008Q3

REPORT INFORMATION
  Report Type: 
  Country: None (occurrence: None)
  Receive Date: 20080801
  Receipt Date: 20080724
  Transmission Date: 20090109
  Serious: Yes (Other)
  Sender: FDA-Public Use
  Company Number: US-TYCO HEALTHCARE/MALLINCKRODT-T200801218

PATIENT

DRUGS (12)
  1. OPTIMARK [Suspect]
     Indication: NUCLEAR MAGNETIC RESONANCE IMAGING
     Dates: start: 20031010, end: 20031010
  2. PROGRAF [Concomitant]
     Indication: PROPHYLAXIS AGAINST TRANSPLANT REJECTION
     Dosage: 2 MG, BID
     Dates: start: 20070507
  3. CELLCEPT [Concomitant]
     Indication: PROPHYLAXIS AGAINST TRANSPLANT REJECTION
     Dosage: 1000 MG, BID
  4. PREDNISONE [Concomitant]
     Indication: PROPHYLAXIS AGAINST TRANSPLANT REJECTION
     Dosage: 20 MG, QOD
  5. SULFAMETHOXAZOLE [Concomitant]
     Indication: DRUG THERAPY
     Dosage: 80 MG, QD
     Dates: start: 20070510
  6. ASPIRIN [Concomitant]
     Indication: ANTICOAGULANT THERAPY
     Dosage: 80 MG, QD
  7. NORVASC [Concomitant]
     Indication: HYPERTENSION
     Dosage: 10 MG, QD
     Dates: start: 19980601
  8. HYDRALAZINE HCL [Concomitant]
     Indication: HYPERTENSION
     Dosage: 25 MG, TID
     Dates: start: 19980601
  9. CLONIDINE [Concomitant]
     Indication: HYPERTENSION
     Dosage: .2 MG, TID
     Dates: start: 19980601
  10. CLONIDINE [Concomitant]
     Dosage: .1 UNK, PRN
  11. METHYLPREDNISOLONE [Concomitant]
     Indication: PROPHYLAXIS AGAINST TRANSPLANT REJECTION
     Dates: start: 20070510
  12. CHOLESTEROL MEDICATION [Concomitant]
     Indication: BLOOD CHOLESTEROL INCREASED
     Dates: start: 20070601

REACTIONS (1)
  - NEPHROGENIC SYSTEMIC FIBROSIS [None]
